FAERS Safety Report 22067185 (Version 3)
Quarter: 2024Q4

REPORT INFORMATION
  Report Type: Report from Study
  Country: CH (occurrence: CH)
  Receive Date: 20230307
  Receipt Date: 20241015
  Transmission Date: 20250115
  Serious: Yes (Hospitalization)
  Sender: ABBVIE
  Company Number: CH-ABBVIE-4330060

PATIENT
  Age: 72 Year
  Sex: Male
  Weight: 123 kg

DRUGS (1)
  1. SKYRIZI [Suspect]
     Active Substance: RISANKIZUMAB-RZAA
     Indication: Palmoplantar pustulosis
     Route: 058
     Dates: start: 202108

REACTIONS (3)
  - Peripheral arterial occlusive disease [Recovered/Resolved]
  - Wound infection [Recovered/Resolved]
  - Arthralgia [Recovered/Resolved]

NARRATIVE: CASE EVENT DATE: 20240702
